FAERS Safety Report 6401386-9 (Version None)
Quarter: 2009Q4

REPORT INFORMATION
  Report Type: 
  Country: None (occurrence: None)
  Receive Date: 20091015
  Receipt Date: 20091006
  Transmission Date: 20100525
  Serious: Yes (Other)
  Sender: FDA-Public Use
  Company Number: PHHY2009SE43119

PATIENT
  Age: 29 Year
  Sex: Male

DRUGS (1)
  1. METOPROLOL [Suspect]
     Indication: HYPERTENSION
     Dosage: UNK
     Dates: start: 19771201, end: 19820301

REACTIONS (5)
  - DEAFNESS [None]
  - DIZZINESS [None]
  - INCORRECT DOSE ADMINISTERED [None]
  - PALPITATIONS [None]
  - POSITIVE ROMBERGISM [None]
